FAERS Safety Report 8588574-0 (Version None)
Quarter: 2012Q3

REPORT INFORMATION
  Report Type: 
  Country: None (occurrence: None)
  Receive Date: 20120803
  Receipt Date: 20120803
  Transmission Date: 20120928
  Serious: Yes (Hospitalization)
  Sender: FDA-Public Use
  Company Number: None

PATIENT
  Age: 58 Year
  Sex: Male
  Weight: 86.9092 kg

DRUGS (2)
  1. PRIFTIN [Suspect]
     Indication: LATENT TUBERCULOSIS
     Dosage: 900 MG WEEKLY PO
     Route: 048
     Dates: start: 20120711, end: 20120725
  2. ISONIAZID [Suspect]
     Indication: LATENT TUBERCULOSIS
     Dosage: 900 MG WEEKLY PO
     Route: 048
     Dates: start: 20120711, end: 20120725

REACTIONS (9)
  - NASOPHARYNGITIS [None]
  - CHILLS [None]
  - PYREXIA [None]
  - NAUSEA [None]
  - TREMOR [None]
  - VOMITING [None]
  - PAIN [None]
  - MALAISE [None]
  - HEPATIC ENZYME INCREASED [None]
